FAERS Safety Report 20827415 (Version 3)
Quarter: 2022Q3

REPORT INFORMATION
  Report Type: Report from Study
  Country: DK (occurrence: None)
  Receive Date: 20220513
  Receipt Date: 20220822
  Transmission Date: 20221027
  Serious: Yes (Hospitalization)
  Sender: FDA-Public Use
  Company Number: DK-ROCHE-3092513

PATIENT
  Age: 48 Year
  Sex: Male

DRUGS (1)
  1. ATEZOLIZUMAB [Suspect]
     Active Substance: ATEZOLIZUMAB
     Indication: Bladder cancer
     Route: 041

REACTIONS (4)
  - Pulmonary oedema [Recovered/Resolved]
  - Respiratory disorder [Unknown]
  - Hypertension [Unknown]
  - Sinus rhythm [Unknown]

NARRATIVE: CASE EVENT DATE: 20220328
